FAERS Safety Report 20208441 (Version 1)
Quarter: 2021Q4

REPORT INFORMATION
  Report Type: Spontaneous
  Country: JP (occurrence: None)
  Receive Date: 20211220
  Receipt Date: 20211220
  Transmission Date: 20220303
  Serious: Yes (Other)
  Sender: FDA-Public Use
  Company Number: 2021A886532

PATIENT

DRUGS (3)
  1. FASLODEX [Suspect]
     Active Substance: FULVESTRANT
     Indication: Disease progression
     Route: 065
  2. IBRANCE [Suspect]
     Active Substance: PALBOCICLIB
     Indication: Disease progression
     Route: 065
  3. IBRANCE [Suspect]
     Active Substance: PALBOCICLIB
     Indication: Disease progression
     Dosage: REDUCED75.0MG UNKNOWN
     Route: 065
     Dates: start: 20200302

REACTIONS (3)
  - Metastases to bone [Unknown]
  - Neutrophil count decreased [Recovered/Resolved]
  - Anaemia [Unknown]
